FAERS Safety Report 7427367-4 (Version None)
Quarter: 2011Q2

REPORT INFORMATION
  Report Type: 
  Country: None (occurrence: None)
  Receive Date: 20110420
  Receipt Date: 20110406
  Transmission Date: 20111010
  Serious: No
  Sender: FDA-Public Use
  Company Number: US-B.I. PHARMACEUTICALS,INC./RIDGEFIELD-2011-BP-10153BP

PATIENT
  Age: 84 Year
  Sex: Female

DRUGS (5)
  1. OXYCODONE HCL [Concomitant]
     Indication: BACK PAIN
  2. LISINOPRIL [Concomitant]
     Indication: HYPERTENSION
  3. PRADAXA [Suspect]
     Indication: ATRIAL FIBRILLATION
     Dosage: 300 MG
     Route: 048
     Dates: start: 20110301
  4. PREDNISONE [Concomitant]
     Indication: LYMPHOMA
  5. COREG [Concomitant]
     Indication: HYPERTENSION

REACTIONS (2)
  - DYSPEPSIA [None]
  - CHEST PAIN [None]
